FAERS Safety Report 25921938 (Version 1)
Quarter: 2025Q4

REPORT INFORMATION
  Report Type: Spontaneous
  Country: US (occurrence: None)
  Receive Date: 20251015
  Receipt Date: 20251015
  Transmission Date: 20260117
  Serious: No
  Sender: Alvotech
  Company Number: US-ALVOTECHPMS-2025-ALVOTECHPMS-005348

PATIENT
  Sex: Male

DRUGS (1)
  1. SELARSDI [Suspect]
     Active Substance: USTEKINUMAB-AEKN
     Indication: Product used for unknown indication
     Dosage: EVERY 6 WEEKS
     Route: 065

REACTIONS (4)
  - Pruritus [Unknown]
  - Pustule [Unknown]
  - Migraine [Unknown]
  - Off label use [Unknown]
